FAERS Safety Report 19715323 (Version 1)
Quarter: 2021Q3

REPORT INFORMATION
  Report Type: Spontaneous
  Country: IN (occurrence: IN)
  Receive Date: 20210818
  Receipt Date: 20210818
  Transmission Date: 20211014
  Serious: Yes (Death)
  Sender: FDA-Public Use
  Company Number: IN-PFIZER INC-2018354365

PATIENT
  Age: 48 Year
  Sex: Female

DRUGS (4)
  1. ZOLDRIA [Suspect]
     Active Substance: ZOLEDRONIC ACID
     Dosage: UNK
     Dates: end: 20180309
  2. LETROZOLE. [Suspect]
     Active Substance: LETROZOLE
     Dosage: 2.5 MG, 1X/DAY
     Dates: start: 20171029
  3. PALBACE [Suspect]
     Active Substance: PALBOCICLIB
     Indication: BREAST CANCER METASTATIC
     Dosage: 125 MG, CYCLIC (ONCE DAILY, 3 WEEKS ON FOLLOWED 1 WEEK)
     Route: 048
     Dates: start: 20171029
  4. FEBUXOSTAT. [Suspect]
     Active Substance: FEBUXOSTAT
     Dosage: 40 MG, UNK

REACTIONS (5)
  - Death [Fatal]
  - Hyperuricaemia [Unknown]
  - Toothache [Unknown]
  - Arthralgia [Unknown]
  - Back disorder [Unknown]

NARRATIVE: CASE EVENT DATE: 20171124
